FAERS Safety Report 6217156-0 (Version None)
Quarter: 2009Q2

REPORT INFORMATION
  Report Type: 
  Country: None (occurrence: None)
  Receive Date: 20090606
  Receipt Date: 20090526
  Transmission Date: 20091009
  Serious: Yes (Hospitalization, Other)
  Sender: FDA-Public Use
  Company Number: PHEH2009US04204

PATIENT
  Sex: Female

DRUGS (2)
  1. ZOMETA [Suspect]
     Indication: METASTASES TO BONE
     Dosage: UNK
     Route: 042
     Dates: start: 20060101, end: 20090401
  2. ZOMETA [Suspect]
     Dosage: UNK, Q OTHER MONTH
     Route: 042

REACTIONS (9)
  - BALANCE DISORDER [None]
  - COUGH [None]
  - FALL [None]
  - FOOT FRACTURE [None]
  - JOINT DISLOCATION [None]
  - PATHOLOGICAL FRACTURE [None]
  - PROSTHESIS IMPLANTATION [None]
  - SURGERY [None]
  - WHEELCHAIR USER [None]
